FAERS Safety Report 25621288 (Version 1)
Quarter: 2025Q3

REPORT INFORMATION
  Report Type: Spontaneous
  Country: TW (occurrence: TW)
  Receive Date: 20250730
  Receipt Date: 20250730
  Transmission Date: 20251020
  Serious: Yes (Other)
  Sender: AZURITY PHARMACEUTICALS
  Company Number: TW-AZURITY PHARMACEUTICALS, INC.-AZR202507-002174

PATIENT
  Age: 68 Year
  Sex: Male

DRUGS (7)
  1. METHYLPREDNISOLONE ACETATE [Suspect]
     Active Substance: METHYLPREDNISOLONE ACETATE
     Indication: Hypersensitivity
     Dosage: 80 MILLIGRAM, DAILY, FOR 3 DAYS
     Route: 042
  2. METHYLPREDNISOLONE ACETATE [Suspect]
     Active Substance: METHYLPREDNISOLONE ACETATE
     Route: 042
  3. PREDNISOLONE [Suspect]
     Active Substance: PREDNISOLONE
     Indication: Hypersensitivity
     Dosage: UNK UNK, DAILY (10-15MG), FOR 4 WEEKS
     Route: 048
  4. PREDNISOLONE [Suspect]
     Active Substance: PREDNISOLONE
     Dosage: 10 MILLIGRAM, DAILY
     Route: 065
  5. PREDNISOLONE [Suspect]
     Active Substance: PREDNISOLONE
     Route: 065
  6. DOXYCYCLINE [Concomitant]
     Active Substance: DOXYCYCLINE
     Indication: Idiopathic pulmonary fibrosis
     Route: 048
  7. TREPROSTINIL [Concomitant]
     Active Substance: TREPROSTINIL
     Indication: Idiopathic pulmonary fibrosis

REACTIONS (2)
  - Dermatitis exfoliative generalised [Recovered/Resolved]
  - Fungal skin infection [Recovered/Resolved]
